FAERS Safety Report 5043627-9 (Version None)
Quarter: 2006Q3

REPORT INFORMATION
  Report Type: 
  Country: None (occurrence: None)
  Receive Date: 20060706
  Receipt Date: 20060703
  Transmission Date: 20061208
  Serious: Yes (Life-Threatening, Hospitalization)
  Sender: FDA-Public Use
  Company Number: PHBS2006PT09881

PATIENT
  Age: 5 Year
  Sex: Female
  Weight: 30 kg

DRUGS (10)
  1. DIAZEPAM [Concomitant]
     Route: 048
     Dates: start: 20060326
  2. BENZYLPENICILLIN SODIUM [Concomitant]
     Dates: start: 20060320, end: 20060326
  3. RISPERIDONE [Concomitant]
     Dates: start: 20060405
  4. SODIUM DOCUSATE + SORBITOL ENEMA [Concomitant]
     Dates: start: 20060424, end: 20060424
  5. BACLOFEN [Concomitant]
     Route: 048
     Dates: start: 20060327
  6. MAGNESIUM HYDROXIDE TAB [Concomitant]
     Route: 048
     Dates: start: 20060424, end: 20060424
  7. CLONAZEPAM [Concomitant]
     Route: 065
     Dates: start: 20060507, end: 20060609
  8. AMOXICILLIN + CLAVULANIC ACID [Concomitant]
     Dosage: 2250 MG/DAY
     Route: 042
     Dates: start: 20060319, end: 20060321
  9. ACYCLOVIR [Concomitant]
     Indication: VARICELLA
     Dosage: 450 MG/DAY
     Route: 042
     Dates: start: 20060320, end: 20060326
  10. TEGRETOL [Suspect]
     Indication: CONVULSION
     Dosage: 200 MG/DAY
     Route: 048
     Dates: start: 20060413, end: 20060426

REACTIONS (5)
  - HYPOALBUMINAEMIA [None]
  - SEPSIS [None]
  - SKIN SWELLING [None]
  - STAPHYLOCOCCAL INFECTION [None]
  - TOXIC EPIDERMAL NECROLYSIS [None]
